FAERS Safety Report 25005033 (Version 1)
Quarter: 2025Q1

REPORT INFORMATION
  Report Type: Spontaneous
  Country: US (occurrence: US)
  Receive Date: 20250224
  Receipt Date: 20250224
  Transmission Date: 20250409
  Serious: Yes (Other)
  Sender: LANTHEUS MEDICAL IMAGING
  Company Number: US-LANTHEUS-LMI-2024-01250

PATIENT
  Age: 83 Year
  Sex: Male
  Weight: 96 kg

DRUGS (1)
  1. DEFINITY [Suspect]
     Active Substance: PERFLUTREN
     Indication: Product used for unknown indication
     Route: 042
     Dates: start: 20240927, end: 20240927

REACTIONS (4)
  - Myocardial infarction [Unknown]
  - Bradycardia [Unknown]
  - Nausea [Unknown]
  - Abdominal pain [Unknown]

NARRATIVE: CASE EVENT DATE: 20240927
